FAERS Safety Report 23631526 (Version 1)
Quarter: 2024Q1

REPORT INFORMATION
  Report Type: Spontaneous
  Country: CN (occurrence: CN)
  Receive Date: 20240314
  Receipt Date: 20240314
  Transmission Date: 20240410
  Serious: Yes (Hospitalization)
  Sender: FDA-Public Use
  Company Number: CN-PFIZER INC-PV202400034311

PATIENT
  Age: 40 Year
  Sex: Male
  Weight: 73 kg

DRUGS (1)
  1. AZITHROMYCIN [Suspect]
     Active Substance: AZITHROMYCIN
     Indication: Oropharyngeal pain
     Dosage: 0.5 G, 1X/DAY
     Route: 048
     Dates: start: 20240301, end: 20240301

REACTIONS (2)
  - Henoch-Schonlein purpura [Recovering/Resolving]
  - Prescription drug used without a prescription [Unknown]

NARRATIVE: CASE EVENT DATE: 20240301
